FAERS Safety Report 9448080 (Version 1)
Quarter: 2013Q3

REPORT INFORMATION
  Report Type: Spontaneous
  Country: US (occurrence: None)
  Receive Date: 20130807
  Receipt Date: 20130807
  Transmission Date: 20140515
  Serious: No
  Sender: FDA-Public Use
  Company Number: None

PATIENT
  Age: 58 Year
  Sex: Female

DRUGS (1)
  1. LASTACAFT [Suspect]
     Indication: MULTIPLE ALLERGIES
     Dosage: 1 DROP  ONCE DAILY INTO THE EYE?TRIED SEVERAL TIMES

REACTIONS (5)
  - Eye swelling [None]
  - Eye pruritus [None]
  - Foreign body sensation in eyes [None]
  - Erythema [None]
  - Erythema of eyelid [None]
